FAERS Safety Report 7967342-4 (Version None)
Quarter: 2011Q4

REPORT INFORMATION
  Report Type: 
  Country: None (occurrence: None)
  Receive Date: 20111209
  Receipt Date: 20111130
  Transmission Date: 20120403
  Serious: Yes (Hospitalization)
  Sender: FDA-Public Use
  Company Number: GR-JNJFOC-20111202320

PATIENT
  Age: 63 Year
  Sex: Male

DRUGS (2)
  1. ACITRETIN [Suspect]
     Indication: PSORIASIS
  2. STELARA [Suspect]
     Indication: PSORIASIS
     Route: 058
     Dates: start: 20111105

REACTIONS (3)
  - ARTHRALGIA [None]
  - DERMATITIS EXFOLIATIVE [None]
  - SWELLING [None]
